FAERS Safety Report 18325770 (Version 1)
Quarter: 2020Q3

REPORT INFORMATION
  Report Type: Spontaneous
  Country: GB (occurrence: GB)
  Receive Date: 20200929
  Receipt Date: 20200929
  Transmission Date: 20201103
  Serious: Yes (Hospitalization, Other)
  Sender: FDA-Public Use
  Company Number: NVSC2020GB258140

PATIENT
  Age: 66 Year
  Sex: Female

DRUGS (15)
  1. PARACETAMOL [Suspect]
     Active Substance: ACETAMINOPHEN
     Indication: PRODUCT USED FOR UNKNOWN INDICATION
     Dosage: UNK (AS REQUIRED)
     Route: 065
  2. BRUFEN [Suspect]
     Active Substance: IBUPROFEN
     Indication: PRODUCT USED FOR UNKNOWN INDICATION
     Dosage: 400 MG, PRN
     Route: 065
  3. PREDNISOLONE. [Suspect]
     Active Substance: PREDNISOLONE
     Dosage: 5 MG
     Route: 065
  4. PREDNISOLONE. [Suspect]
     Active Substance: PREDNISOLONE
     Dosage: 10 MG, QD (5 MG, 2X/DAY)
     Route: 065
  5. PREDNISOLONE. [Suspect]
     Active Substance: PREDNISOLONE
     Dosage: 10 MG (SHE OCCASIONALLY HAS TO INCREASE THE PREDNISOLONE TO 10 MGS)
     Route: 065
  6. XELJANZ [Suspect]
     Active Substance: TOFACITINIB CITRATE
     Dosage: 5 MG, QD (2.5 MG, 2X/DAY)
     Route: 065
     Dates: start: 20190215, end: 20190524
  7. XELJANZ [Suspect]
     Active Substance: TOFACITINIB CITRATE
     Dosage: UNK
     Route: 065
     Dates: start: 20200320
  8. OMEPRAZOLE. [Suspect]
     Active Substance: OMEPRAZOLE
     Indication: PRODUCT USED FOR UNKNOWN INDICATION
     Dosage: UNK (AS REQUIRED)
     Route: 065
  9. PREDNISOLONE. [Suspect]
     Active Substance: PREDNISOLONE
     Indication: RHEUMATOID ARTHRITIS
     Dosage: UNK (REDUCE PREDNISOLONE TO 7.5MG (5MG ONE DAY, 10MG THE NEXT)UNK)
     Route: 065
  10. PREDNISOLONE. [Suspect]
     Active Substance: PREDNISOLONE
     Dosage: UNK (AS PRESCRIBED REQUIRED)
     Route: 065
     Dates: start: 20190524, end: 20200714
  11. XELJANZ [Suspect]
     Active Substance: TOFACITINIB CITRATE
     Dosage: UNK
     Route: 065
     Dates: start: 20200102, end: 20200203
  12. XELJANZ [Suspect]
     Active Substance: TOFACITINIB CITRATE
     Dosage: 2.5 MG, QD (2.5 MG, 1X/DAY)
     Route: 065
  13. XELJANZ [Suspect]
     Active Substance: TOFACITINIB CITRATE
     Indication: RHEUMATOID ARTHRITIS
     Dosage: UNK (XELJANZ RESTARTED)
     Route: 065
     Dates: start: 20190202, end: 20190206
  14. XELJANZ [Suspect]
     Active Substance: TOFACITINIB CITRATE
     Dosage: UNK (RESTARTED XELJANZ)
     Route: 065
     Dates: start: 20191115, end: 20191223
  15. XELJANZ [Suspect]
     Active Substance: TOFACITINIB CITRATE
     Dosage: UNK
     Route: 065
     Dates: start: 20180816, end: 20190111

REACTIONS (33)
  - Lower respiratory tract infection [Unknown]
  - Myalgia [Unknown]
  - Pleuritic pain [Recovered/Resolved]
  - Heart rate increased [Recovered/Resolved]
  - Eating disorder [Unknown]
  - Fluid retention [Unknown]
  - Malaise [Recovered/Resolved]
  - Vision blurred [Unknown]
  - Chest pain [Recovered/Resolved]
  - Pneumonia [Unknown]
  - Mobility decreased [Unknown]
  - Nasal congestion [Unknown]
  - Dizziness [Unknown]
  - Urticaria [Unknown]
  - Candida infection [Unknown]
  - Joint swelling [Unknown]
  - Swelling [Unknown]
  - Dyspnoea [Recovered/Resolved]
  - Oropharyngeal pain [Unknown]
  - Inflammation [Unknown]
  - Lower respiratory tract infection [Unknown]
  - Fatigue [Unknown]
  - Pain [Unknown]
  - Headache [Unknown]
  - Sleep disorder [Unknown]
  - Chest discomfort [Recovered/Resolved]
  - Lower respiratory tract infection [Unknown]
  - Deep vein thrombosis [Unknown]
  - Synovial cyst [Unknown]
  - Pain in jaw [Recovering/Resolving]
  - Impaired quality of life [Unknown]
  - Constipation [Unknown]
  - Pruritus [Unknown]

NARRATIVE: CASE EVENT DATE: 20181201
